FAERS Safety Report 6594417-7 (Version None)
Quarter: 2010Q1

REPORT INFORMATION
  Report Type: 
  Country: None (occurrence: None)
  Receive Date: 20100222
  Receipt Date: 20100217
  Transmission Date: 20100710
  Serious: Yes (Hospitalization)
  Sender: FDA-Public Use
  Company Number: B0634255A

PATIENT
  Sex: Male

DRUGS (4)
  1. CLAMOXYL [Suspect]
     Indication: BRONCHITIS
     Dosage: 1G SINGLE DOSE
     Route: 048
     Dates: start: 20090727, end: 20090727
  2. PREVISCAN [Suspect]
     Dosage: 20MG UNKNOWN
     Route: 048
  3. TAHOR [Suspect]
     Route: 048
  4. ATENOLOL [Suspect]
     Indication: DRUG USE FOR UNKNOWN INDICATION
     Route: 048

REACTIONS (5)
  - DIARRHOEA [None]
  - HAEMOCONCENTRATION [None]
  - INTERNATIONAL NORMALISED RATIO INCREASED [None]
  - RECTAL HAEMORRHAGE [None]
  - VOMITING [None]
